FAERS Safety Report 5319845-9 (Version None)
Quarter: 2007Q2

REPORT INFORMATION
  Report Type: 
  Country: None (occurrence: None)
  Receive Date: 20070509
  Receipt Date: 20070430
  Transmission Date: 20071010
  Serious: Yes (Hospitalization, Other)
  Sender: FDA-Public Use
  Company Number: PHEH2007US06665

PATIENT
  Age: 58 Year
  Sex: Female

DRUGS (1)
  1. ZELNORM [Suspect]
     Indication: IRRITABLE BOWEL SYNDROME
     Dosage: 6 MG, QD
     Route: 048
     Dates: start: 20030101, end: 20070330

REACTIONS (5)
  - ANXIETY [None]
  - CHEST DISCOMFORT [None]
  - DISORIENTATION [None]
  - GAIT DISTURBANCE [None]
  - HEART RATE DECREASED [None]
